FAERS Safety Report 7322841-3 (Version None)
Quarter: 2011Q1

REPORT INFORMATION
  Report Type: 
  Country: None (occurrence: None)
  Receive Date: 20110203
  Receipt Date: 20110124
  Transmission Date: 20110831
  Serious: Yes (Other)
  Sender: FDA-Public Use
  Company Number: 2011027482

PATIENT
  Age: 77 Year
  Sex: Male

DRUGS (10)
  1. CORVASAL (MOLSIDOMINE) [Concomitant]
  2. SPIRIVA [Concomitant]
  3. VIVAGLOBIN [Suspect]
     Indication: IMMUNODEFICIENCY
     Dosage: 4.8 G, 160 MG/ML, 4.8 G, NI
     Route: 058
     Dates: start: 20100715
  4. VIVAGLOBIN [Suspect]
     Indication: IMMUNODEFICIENCY
     Dosage: 4.8 G, 160 MG/ML, 4.8 G, NI
     Route: 058
     Dates: start: 20100707
  5. VIVAGLOBIN [Suspect]
     Indication: IMMUNODEFICIENCY
     Dosage: 4.8 G, 160 MG/ML, 4.8 G, NI
     Route: 058
     Dates: start: 20101017
  6. PLAVIX [Concomitant]
  7. CRESTOR [Concomitant]
  8. HUMALOG MIX 25 (HUMALOG MIX /01500801/) [Concomitant]
  9. DILTIAZEM HCL [Concomitant]
  10. PERINDOPRIL (PERINDOPRIL) [Concomitant]

REACTIONS (2)
  - BODY TEMPERATURE INCREASED [None]
  - TRANSIENT ISCHAEMIC ATTACK [None]
